FAERS Safety Report 25962186 (Version 1)
Quarter: 2025Q4

REPORT INFORMATION
  Report Type: Spontaneous
  Country: IN (occurrence: IN)
  Receive Date: 20251027
  Receipt Date: 20251027
  Transmission Date: 20260117
  Serious: Yes (Hospitalization, Other)
  Sender: RK PHARMA
  Company Number: IN-RK PHARMA, INC-20251000143

PATIENT
  Age: 27 Year
  Sex: Male

DRUGS (5)
  1. CARBAMAZEPINE [Suspect]
     Active Substance: CARBAMAZEPINE
     Indication: Seizure
     Dosage: 300 MILLIGRAM, BID
     Route: 065
  2. VALPROATE SODIUM [Suspect]
     Active Substance: VALPROATE SODIUM
     Indication: Seizure
     Dosage: 500 MILLIGRAM, BID
     Route: 065
  3. PHENYTOIN [Suspect]
     Active Substance: PHENYTOIN
     Indication: Seizure
     Dosage: 100 MILLIGRAM, TID
     Route: 065
  4. FLUOXETINE [Concomitant]
     Active Substance: FLUOXETINE HYDROCHLORIDE
     Indication: Anxiety disorder
     Dosage: 20 MILLIGRAM, BID
     Route: 065
  5. CLONAZEPAM [Concomitant]
     Active Substance: CLONAZEPAM
     Indication: Anxiety disorder
     Dosage: 0.5 MILLIGRAM, QD
     Route: 065

REACTIONS (3)
  - Hypocalcaemia [Recovered/Resolved]
  - Hypocalcaemic seizure [Recovered/Resolved]
  - Condition aggravated [Recovered/Resolved]
